FAERS Safety Report 8438721-6 (Version None)
Quarter: 2012Q2

REPORT INFORMATION
  Report Type: 
  Country: None (occurrence: None)
  Receive Date: 20120611
  Receipt Date: 20120611
  Transmission Date: 20120825
  Serious: Yes (Hospitalization)
  Sender: FDA-Public Use
  Company Number: None

PATIENT
  Age: 65 Year
  Sex: Male

DRUGS (2)
  1. VIDAZA [Suspect]
  2. PLERIXAFOR/ G-CSF [Suspect]
     Indication: MYELODYSPLASTIC SYNDROME
     Dates: start: 20120505

REACTIONS (1)
  - PANCYTOPENIA [None]
